FAERS Safety Report 16045931 (Version 3)
Quarter: 2025Q1

REPORT INFORMATION
  Report Type: Spontaneous
  Country: ES (occurrence: ES)
  Receive Date: 20190307
  Receipt Date: 20250113
  Transmission Date: 20250409
  Serious: Yes (Other)
  Sender: AUROBINDO
  Company Number: ES-AUROBINDO-AUR-APL-2018-063513

PATIENT
  Age: 33 Year
  Sex: Female

DRUGS (4)
  1. OMEPRAZOLE [Suspect]
     Active Substance: OMEPRAZOLE
     Indication: Dyspepsia
     Dosage: 20 MILLIGRAM, ONCE A DAY, INTERMITTENTLY
     Route: 065
  2. OMEPRAZOLE [Suspect]
     Active Substance: OMEPRAZOLE
     Indication: Dyspepsia
     Dosage: 40 MILLIGRAM, DAILY
     Route: 065
  3. FERROUS SULFATE [Suspect]
     Active Substance: FERROUS SULFATE
     Indication: Iron deficiency anaemia
     Dosage: 80 MILLIGRAM, DAILY
     Route: 065
  4. FERROUS SULFATE [Suspect]
     Active Substance: FERROUS SULFATE
     Indication: Iron deficiency anaemia
     Dosage: 80 MILLIGRAM, ONCE A DAY
     Route: 065

REACTIONS (9)
  - Achlorhydria [Recovered/Resolved]
  - Prescription drug used without a prescription [Recovered/Resolved]
  - Malabsorption [Recovered/Resolved]
  - Vitamin B12 deficiency [Recovered/Resolved]
  - Therapeutic response changed [Recovered/Resolved]
  - Drug interaction [Recovered/Resolved]
  - Somnolence [Unknown]
  - Asthenia [Unknown]
  - Treatment failure [Unknown]
